FAERS Safety Report 5033575-2 (Version None)
Quarter: 2006Q2

REPORT INFORMATION
  Report Type: 
  Country: None (occurrence: None)
  Receive Date: 20060623
  Receipt Date: 20060613
  Transmission Date: 20061013
  Serious: Yes (Hospitalization)
  Sender: FDA-Public Use
  Company Number: IT-ROCHE-451384

PATIENT
  Age: 57 Year
  Sex: Male

DRUGS (8)
  1. MYCOPHENOLATE MOFETIL [Suspect]
     Route: 048
     Dates: start: 20060125
  2. FK506 [Suspect]
     Route: 048
     Dates: start: 20060125
  3. ALBUMIN [Concomitant]
  4. BACTRIM [Concomitant]
  5. CIPROFLOXACIN HCL [Concomitant]
  6. INSULIN [Concomitant]
  7. ACETYLSALICYLIC ACID SRT [Concomitant]
  8. RIBAVIRIN [Concomitant]

REACTIONS (1)
  - CORONARY ARTERY STENOSIS [None]
